FAERS Safety Report 5369776-3 (Version None)
Quarter: 2007Q2

REPORT INFORMATION
  Report Type: 
  Country: None (occurrence: None)
  Receive Date: 20070620
  Receipt Date: 20070606
  Transmission Date: 20071010
  Serious: Yes (Other)
  Sender: FDA-Public Use
  Company Number: B0474970A

PATIENT
  Age: 27 Year
  Sex: Male

DRUGS (2)
  1. COMBIVIR [Suspect]
     Indication: ACQUIRED IMMUNODEFICIENCY SYNDROME
  2. KALETRA [Suspect]
     Indication: ACQUIRED IMMUNODEFICIENCY SYNDROME

REACTIONS (6)
  - BASEDOW'S DISEASE [None]
  - FALL [None]
  - HYPOKALAEMIA [None]
  - HYPOTHYROIDISM [None]
  - IMMUNE RECONSTITUTION SYNDROME [None]
  - THYROTOXIC PERIODIC PARALYSIS [None]
